FAERS Safety Report 6668707-3 (Version None)
Quarter: 2010Q2

REPORT INFORMATION
  Report Type: 
  Country: None (occurrence: None)
  Receive Date: 20100406
  Receipt Date: 20100331
  Transmission Date: 20101027
  Serious: Yes (Disabling, Other)
  Sender: FDA-Public Use
  Company Number: AU-WYE-G05864710

PATIENT
  Sex: Female

DRUGS (8)
  1. EFFEXOR XR [Suspect]
     Dosage: STARTED ON EFEXOR XR INCREASING UP TO 100MG AT NIGHT 2-3 MONTHS AGO, THEN 150MG/DAY THEN 100MG/DAY
  2. FOSINOPRIL SODIUM [Concomitant]
  3. SIMVASTATIN [Concomitant]
  4. NORVASC [Concomitant]
  5. ASPIRIN [Concomitant]
  6. NEXIUM [Concomitant]
  7. TAMBOCOR [Concomitant]
  8. HYDROCHLOROTHIAZIDE [Concomitant]

REACTIONS (5)
  - ANXIETY [None]
  - BEDRIDDEN [None]
  - HEAD DISCOMFORT [None]
  - HEADACHE [None]
  - SEDATION [None]
